FAERS Safety Report 9999090 (Version 3)
Quarter: 2014Q2

REPORT INFORMATION
  Report Type: Spontaneous
  Country: US (occurrence: US)
  Receive Date: 20140312
  Receipt Date: 20140418
  Transmission Date: 20141212
  Serious: Yes (Other)
  Sender: FDA-Public Use
  Company Number: US-UCBSA-110922

PATIENT
  Sex: Female

DRUGS (3)
  1. CIMZIA [Suspect]
     Dosage: 2 PFS PER MONTH
     Route: 058
     Dates: start: 2013, end: 2014
  2. GABAPENTIN [Concomitant]
     Indication: NEURALGIA
     Route: 048
  3. DICLOFENAC [Concomitant]
     Indication: PAIN

REACTIONS (2)
  - Psoriasis [Recovering/Resolving]
  - Nail growth abnormal [Recovered/Resolved]
